FAERS Safety Report 4364549-2 (Version None)
Quarter: 2004Q2

REPORT INFORMATION
  Report Type: 
  Country: None (occurrence: None)
  Receive Date: 20040521
  Receipt Date: 20040510
  Transmission Date: 20050107
  Serious: Yes (Hospitalization)
  Sender: FDA-Public Use
  Company Number: TCI2004A01948

PATIENT
  Age: 40 Year
  Sex: Female

DRUGS (3)
  1. ACTOS [Suspect]
     Indication: DIABETES MELLITUS INSULIN-DEPENDENT
     Dosage: 15 MG (15 MG, 1 PER ORAL)
     Route: 048
     Dates: start: 20040316, end: 20040422
  2. ACTOS [Suspect]
     Indication: DIABETES MELLITUS INSULIN-DEPENDENT
     Dosage: 15 MG (15 MG, 1 PER ORAL)
     Route: 048
     Dates: start: 20040423, end: 20040426
  3. AMARYL [Suspect]
     Indication: DIABETES MELLITUS INSULIN-DEPENDENT
     Dosage: 3 MG (3MG, 1 D) PER ORAL
     Route: 048
     Dates: start: 20040101

REACTIONS (6)
  - DRUG INEFFECTIVE [None]
  - FACE OEDEMA [None]
  - KETOSIS [None]
  - LIVER DISORDER [None]
  - OEDEMA PERIPHERAL [None]
  - WHITE BLOOD CELL COUNT DECREASED [None]
